FAERS Safety Report 6113820-2 (Version None)
Quarter: 2009Q1

REPORT INFORMATION
  Report Type: 
  Country: None (occurrence: None)
  Receive Date: 20090312
  Receipt Date: 20090304
  Transmission Date: 20090719
  Serious: Yes (Hospitalization)
  Sender: FDA-Public Use
  Company Number: US-BAXTER-2009BH003762

PATIENT

DRUGS (1)
  1. DURAMORPH PF [Suspect]
     Indication: PAIN MANAGEMENT
     Route: 037
     Dates: start: 20060101

REACTIONS (2)
  - HEADACHE [None]
  - INTRACRANIAL HYPOTENSION [None]
